FAERS Safety Report 5340544-1 (Version None)
Quarter: 2007Q2

REPORT INFORMATION
  Report Type: 
  Country: None (occurrence: None)
  Receive Date: 20070531
  Receipt Date: 20070521
  Transmission Date: 20071010
  Serious: Yes (Disabling)
  Sender: FDA-Public Use
  Company Number: CH-PFIZER INC-2007029981

PATIENT
  Sex: Male
  Weight: 87 kg

DRUGS (5)
  1. ATORVASTATIN CALCIUM [Suspect]
     Indication: HYPERLIPIDAEMIA
     Route: 048
     Dates: start: 20050526, end: 20070206
  2. INSULIN DETEMIR [Concomitant]
     Dosage: FREQ:ONE TO THREE TIMES A DAY
  3. NOVORAPID [Concomitant]
     Dosage: FREQ:ONE TO THREE TIMES A DAY
  4. METFORMIN HCL [Concomitant]
  5. PLAVIX [Concomitant]

REACTIONS (1)
  - MUSCLE SPASMS [None]
